FAERS Safety Report 9064518 (Version 1)
Quarter: 2013Q1

REPORT INFORMATION
  Report Type: Spontaneous
  Country: FR (occurrence: FR)
  Receive Date: 20130213
  Receipt Date: 20130213
  Transmission Date: 20140127
  Serious: Yes (Death)
  Sender: FDA-Public Use
  Company Number: FR-B.I. PHARMACEUTICALS,INC./RIDGEFIELD-2013-FF-00416FF

PATIENT
  Age: 82 None
  Sex: Female

DRUGS (9)
  1. PRADAXA [Suspect]
     Indication: ATRIAL FIBRILLATION
     Dosage: 220 MG
     Route: 048
     Dates: start: 20130123
  2. GAVISCON [Concomitant]
  3. TARKA LP [Concomitant]
     Indication: HYPERTENSION
  4. TENSTATEN [Concomitant]
     Indication: HYPERTENSION
  5. CIPROFIBRATE [Concomitant]
     Indication: DYSLIPIDAEMIA
     Dosage: 200 MG
  6. TANGANIL [Concomitant]
     Indication: VERTIGO
  7. DOMPERIDONE [Concomitant]
  8. INEXIUM [Concomitant]
  9. ZOLPIDEM [Concomitant]

REACTIONS (2)
  - Cardiac arrest [Fatal]
  - Cataract [Recovered/Resolved]
